FAERS Safety Report 4383899-7 (Version None)
Quarter: 2004Q2

REPORT INFORMATION
  Report Type: 
  Country: None (occurrence: None)
  Receive Date: 20040623
  Receipt Date: 20040623
  Transmission Date: 20050107
  Serious: Yes (Hospitalization)
  Sender: FDA-Public Use
  Company Number: None

PATIENT
  Age: 46 Year
  Sex: Male

DRUGS (5)
  1. TAXOL [Suspect]
     Indication: OESOPHAGEAL CARCINOMA
     Dates: start: 20030507, end: 20040819
  2. CISPLATIN [Suspect]
  3. RTI .8GY X 5 DAYS/WK X 5 WEEKS WITH TAXOL AND CISPLATIN [Suspect]
  4. TPN [Concomitant]
  5. ANTIBIOTICS [Concomitant]

REACTIONS (4)
  - ANOREXIA [None]
  - ASTHENIA [None]
  - NAUSEA [None]
  - PYREXIA [None]
